FAERS Safety Report 8387112-5 (Version None)
Quarter: 2012Q2

REPORT INFORMATION
  Report Type: 
  Country: None (occurrence: None)
  Receive Date: 20120525
  Receipt Date: 20120517
  Transmission Date: 20120825
  Serious: Yes (Hospitalization, Other)
  Sender: FDA-Public Use
  Company Number: US-ACTELION-A-US2012-66007

PATIENT

DRUGS (5)
  1. VENTAVIS [Suspect]
     Indication: PULMONARY ARTERIAL HYPERTENSION
     Route: 055
  2. COUMADIN [Concomitant]
  3. TRACLEER [Suspect]
     Indication: PULMONARY ARTERIAL HYPERTENSION
     Dosage: UNK
     Route: 048
  4. ADCIRCA [Concomitant]
  5. REMODULIN [Concomitant]

REACTIONS (14)
  - CATHETER PLACEMENT [None]
  - OEDEMA PERIPHERAL [None]
  - ABDOMINAL PAIN [None]
  - NAUSEA [None]
  - OXYGEN SATURATION DECREASED [None]
  - JOINT EFFUSION [None]
  - PAIN IN JAW [None]
  - ARTHRALGIA [None]
  - CARDIAC FLUTTER [None]
  - FLUSHING [None]
  - HEADACHE [None]
  - OSTEOARTHRITIS [None]
  - HOT FLUSH [None]
  - ARTERIAL INJURY [None]
